FAERS Safety Report 13051598 (Version 1)
Quarter: 2016Q4

REPORT INFORMATION
  Report Type: Report from Study
  Country: DE (occurrence: DE)
  Receive Date: 20161221
  Receipt Date: 20161221
  Transmission Date: 20170207
  Serious: Yes (Hospitalization)
  Sender: FDA-Public Use
  Company Number: DE-TEVA-673134GER

PATIENT
  Age: 59 Year
  Sex: Female
  Weight: 70 kg

DRUGS (2)
  1. L-THYROXIN 100 MICROGRAM [Concomitant]
     Indication: HYPOTHYROIDISM
  2. COPAXONE [Suspect]
     Active Substance: GLATIRAMER ACETATE
     Indication: MULTIPLE SCLEROSIS
     Route: 058
     Dates: start: 20150626

REACTIONS (5)
  - Pain [Recovering/Resolving]
  - Lymphadenopathy [Unknown]
  - Lymphadenitis [Unknown]
  - Injection site pain [Recovering/Resolving]
  - Injection site abscess [Unknown]

NARRATIVE: CASE EVENT DATE: 20160623
